FAERS Safety Report 14310070 (Version 6)
Quarter: 2020Q3

REPORT INFORMATION
  Report Type: Spontaneous
  Country: AT (occurrence: AT)
  Receive Date: 20171220
  Receipt Date: 20200722
  Transmission Date: 20201102
  Serious: Yes (Life-Threatening, Hospitalization, Other)
  Sender: FDA-Public Use
  Company Number: AT-MYLANLABS-2017M1079499

PATIENT
  Age: 5 Year
  Sex: Male

DRUGS (34)
  1. VORICONAZOLE. [Suspect]
     Active Substance: VORICONAZOLE
     Indication: ANTIFUNGAL TREATMENT
  2. POSACONAZOLE [Suspect]
     Active Substance: POSACONAZOLE
     Indication: ANTIFUNGAL TREATMENT
     Dosage: 15 MILLIGRAM/KILOGRAM, QD
     Dates: start: 201504, end: 201505
  3. METHOTREXATE. [Suspect]
     Active Substance: METHOTREXATE
     Dosage: UNK, BLOCK II A
     Route: 037
     Dates: end: 201502
  4. AMPHOTERICIN B, LIPOSOME [Suspect]
     Active Substance: AMPHOTERICIN B
     Indication: SYSTEMIC MYCOSIS
     Dosage: 1 MG/KG, QD
     Route: 042
  5. ENDOXAN [Suspect]
     Active Substance: CYCLOPHOSPHAMIDE
     Indication: ACUTE LYMPHOCYTIC LEUKAEMIA
     Dosage: UNK, BLOCK IB
  6. CEFTAZIDIM [Concomitant]
     Active Substance: CEFTAZIDIME
     Indication: LUNG INFILTRATION
     Dosage: UNK
  7. POSACONAZOLE [Suspect]
     Active Substance: POSACONAZOLE
     Dosage: 20 MG/KG, DAILY (INCREASED DOSAGE OF 20 MG/KG/DAY)
     Dates: start: 201604, end: 201605
  8. AMPHOTERICIN B, LIPOSOME [Suspect]
     Active Substance: AMPHOTERICIN B
     Dosage: 10 MILLIGRAM/KILOGRAM, QD
     Route: 042
     Dates: start: 201505
  9. ONCASPAR [Suspect]
     Active Substance: PEGASPARGASE
     Indication: B PRECURSOR TYPE ACUTE LEUKAEMIA
     Dosage: 2500 U/M2, DAY 12 AND DAY 26 OF BLOCK IA
     Route: 042
     Dates: start: 201408, end: 201408
  10. PREDNISONE ACETATE [Suspect]
     Active Substance: PREDNISONE ACETATE
     Dosage: UNK
     Dates: start: 201501, end: 2015
  11. AMPHOTERICIN B, LIPOSOME [Suspect]
     Active Substance: AMPHOTERICIN B
     Indication: MUCORMYCOSIS
     Dosage: 2.5 MG/KG, QD EVERY SECOND DAY
  12. VINCRISTINE SULFATE. [Suspect]
     Active Substance: VINCRISTINE SULFATE
     Dosage: UNK, BLOCK IIA
     Route: 065
     Dates: start: 201501, end: 2015
  13. CASPOFUNGIN [Suspect]
     Active Substance: CASPOFUNGIN
     Dosage: UNK
     Dates: start: 20150220, end: 20150312
  14. METHOTREXATE. [Suspect]
     Active Substance: METHOTREXATE
     Indication: ACUTE LYMPHOCYTIC LEUKAEMIA
     Dosage: UNK, BLOCK IA
     Route: 037
     Dates: start: 201408, end: 201502
  15. METHOTREXATE. [Suspect]
     Active Substance: METHOTREXATE
     Dosage: 0.5?0.7 MG/KG ONCE WEEKLY
     Route: 037
     Dates: start: 201504, end: 201505
  16. DEXAMETHASONE SODIUM SUCCINATE [Suspect]
     Active Substance: DEXAMETHASONE SODIUM SUCCINATE
     Indication: ACUTE LYMPHOCYTIC LEUKAEMIA
     Dosage: UNK, BLOCK IIA
     Route: 065
     Dates: start: 201501, end: 201502
  17. DAUNORUBICIN HYDROCHLORIDE. [Suspect]
     Active Substance: DAUNORUBICIN HYDROCHLORIDE
     Indication: ACUTE LYMPHOCYTIC LEUKAEMIA
     Dosage: 4 DOSES, BLOCK IA
     Route: 065
     Dates: start: 201408, end: 2014
  18. ALEXAN (CYTARABINE) [Suspect]
     Active Substance: CYTARABINE
     Indication: ACUTE LYMPHOCYTIC LEUKAEMIA
     Dosage: UNK, BLOCK IB
     Route: 065
  19. VORICONAZOLE. [Suspect]
     Active Substance: VORICONAZOLE
     Indication: MUCORMYCOSIS
     Dosage: 8 MILLIGRAM/KILOGRAM, QD
     Route: 065
     Dates: start: 201503, end: 201504
  20. DOXORUBICIN [Suspect]
     Active Substance: DOXORUBICIN
     Indication: ACUTE LYMPHOCYTIC LEUKAEMIA
     Dosage: UNK, BLOCK IIA
     Dates: start: 201501, end: 201501
  21. ONCASPAR [Suspect]
     Active Substance: PEGASPARGASE
     Dosage: 2500 U/M2, DAY 12 AND DA8 OF BLOCK IIA
     Route: 042
     Dates: start: 201501, end: 201501
  22. PREDNISONE ACETATE [Suspect]
     Active Substance: PREDNISONE ACETATE
     Indication: ACUTE LYMPHOCYTIC LEUKAEMIA
     Dosage: UNK, BLOCK IA
     Route: 065
     Dates: start: 201408, end: 2014
  23. VINCRISTINE SULFATE. [Suspect]
     Active Substance: VINCRISTINE SULFATE
     Indication: ACUTE LYMPHOCYTIC LEUKAEMIA
     Dosage: UNK, BLOCK IA
     Route: 065
     Dates: start: 201408, end: 2014
  24. METHOTREXATE. [Concomitant]
     Active Substance: METHOTREXATE
     Dosage: 0.5?0.7 MG/KG ONCE WEEKLY
     Dates: start: 201504, end: 201505
  25. CASPOFUNGIN [Suspect]
     Active Substance: CASPOFUNGIN
     Dosage: UNK
  26. AMPHOTERICIN B, LIPOSOME [Suspect]
     Active Substance: AMPHOTERICIN B
     Dosage: 5 MG/KG, QD EVERY THIRD DAY
     Route: 042
     Dates: start: 201503, end: 201504
  27. MERCAPTOPURINE. [Suspect]
     Active Substance: MERCAPTOPURINE
     Indication: ACUTE LYMPHOCYTIC LEUKAEMIA
     Dosage: UNK, BLOCK IB
     Route: 065
     Dates: start: 2014, end: 2014
  28. VORICONAZOLE. [Suspect]
     Active Substance: VORICONAZOLE
     Indication: ASPERGILLUS INFECTION
     Dosage: 8 MILLIGRAM/KILOGRAM, QD
     Dates: start: 20150317, end: 20150402
  29. CASPOFUNGIN [Suspect]
     Active Substance: CASPOFUNGIN
     Indication: ANTIFUNGAL TREATMENT
     Dosage: 1 MILLIGRAM/KILOGRAM, QD
     Dates: start: 201502, end: 201503
  30. METHOTREXATE. [Suspect]
     Active Substance: METHOTREXATE
     Dosage: UNK, BLOCK IB
     Route: 037
  31. AMPHOTERICIN B, LIPOSOME [Suspect]
     Active Substance: AMPHOTERICIN B
     Indication: ANTIFUNGAL TREATMENT
     Dosage: 10 MG/KG, QD, (INCREASED TO 10 MG/KG)
     Route: 042
     Dates: start: 201504, end: 201505
  32. AMPHOTERICIN B. [Suspect]
     Active Substance: AMPHOTERICIN B
     Indication: GASTRIC INFECTION
     Dosage: UNK
     Dates: start: 201408, end: 201612
  33. LINEZOLID. [Concomitant]
     Active Substance: LINEZOLID
     Indication: LUNG INFILTRATION
     Dosage: UNK
  34. 6?MERCAPTOPURINE MONOHYDRATE [Concomitant]
     Active Substance: MERCAPTOPURINE
     Dosage: 1.5 MILLIGRAM/KILOGRAM, QD
     Dates: start: 201504, end: 201505

REACTIONS (7)
  - Mucormycosis [Recovered/Resolved]
  - Drug ineffective [Unknown]
  - Pulmonary mucormycosis [Recovered/Resolved]
  - Hypokalaemia [Unknown]
  - No adverse event [Unknown]
  - Treatment noncompliance [Unknown]
  - Off label use [Recovered/Resolved]

NARRATIVE: CASE EVENT DATE: 201502
